FAERS Safety Report 5745570-6 (Version None)
Quarter: 2008Q2

REPORT INFORMATION
  Report Type: 
  Country: None (occurrence: None)
  Receive Date: 20080519
  Receipt Date: 20080213
  Transmission Date: 20081010
  Serious: No
  Sender: FDA-Public Use
  Company Number: TPA2008A00208

PATIENT
  Age: 67 Year
  Sex: Female
  Weight: 122.4712 kg

DRUGS (11)
  1. ROZEREM [Suspect]
     Indication: INITIAL INSOMNIA
     Dosage: 8 MG, QHS 30 MINS BEFORE BED, PER ORAL
     Route: 048
     Dates: start: 20080211
  2. ROZEREM [Suspect]
     Indication: MIDDLE INSOMNIA
     Dosage: 8 MG, QHS 30 MINS BEFORE BED, PER ORAL
     Route: 048
     Dates: start: 20080211
  3. COZAAR [Concomitant]
  4. LISINOPRIL [Concomitant]
  5. METOPROLOL TARTRATE [Concomitant]
  6. LEVOTHYROXINE SODIUM [Concomitant]
  7. FLECAINIDE ACETATE [Concomitant]
  8. MULTIVITAMIN [Concomitant]
  9. VITAMIN E [Concomitant]
  10. GARLIC (ALLIUM SATIVUM) [Concomitant]
  11. WARFARIN SODIUM [Concomitant]

REACTIONS (4)
  - DRUG INEFFECTIVE [None]
  - HEADACHE [None]
  - INITIAL INSOMNIA [None]
  - STOMACH DISCOMFORT [None]
